FAERS Safety Report 5595879-4 (Version None)
Quarter: 2008Q1

REPORT INFORMATION
  Report Type: 
  Country: None (occurrence: None)
  Receive Date: 20080118
  Receipt Date: 20071226
  Transmission Date: 20080703
  Serious: No
  Sender: FDA-Public Use
  Company Number: US-BRISTOL-MYERS SQUIBB COMPANY-14024947

PATIENT
  Age: 3 Year
  Sex: Male

DRUGS (1)
  1. CEFZIL [Suspect]
     Dates: start: 20071226

REACTIONS (1)
  - ACCIDENTAL DRUG INTAKE BY CHILD [None]
